FAERS Safety Report 7983688-8 (Version None)
Quarter: 2011Q4

REPORT INFORMATION
  Report Type: 
  Country: None (occurrence: None)
  Receive Date: 20111215
  Receipt Date: 20111213
  Transmission Date: 20120403
  Serious: Yes (Other)
  Sender: FDA-Public Use
  Company Number: GB-MERCK-1111GBR00103

PATIENT
  Age: 17 Year
  Sex: Female
  Weight: 44 kg

DRUGS (4)
  1. DOMPERIDONE [Concomitant]
     Route: 065
  2. OMEPRAZOLE [Concomitant]
     Route: 065
  3. SINGULAIR [Suspect]
     Route: 048
     Dates: start: 20110224, end: 20111110
  4. LYMECYCLINE [Concomitant]
     Route: 065

REACTIONS (3)
  - AGITATED DEPRESSION [None]
  - POOR QUALITY SLEEP [None]
  - INTENTIONAL SELF-INJURY [None]
